FAERS Safety Report 16731326 (Version 1)
Quarter: 2019Q3

REPORT INFORMATION
  Report Type: Report from Study
  Country: US (occurrence: US)
  Receive Date: 20190822
  Receipt Date: 20190822
  Transmission Date: 20191005
  Serious: Yes (Other)
  Sender: FDA-Public Use
  Company Number: US-JNJFOC-20190824164

PATIENT
  Sex: Male

DRUGS (13)
  1. TOUJEO [Concomitant]
     Active Substance: INSULIN GLARGINE
  2. FERROUS SULFATE. [Concomitant]
     Active Substance: FERROUS SULFATE
  3. ALLOPURINOL. [Concomitant]
     Active Substance: ALLOPURINOL
  4. JARDIANCE [Concomitant]
     Active Substance: EMPAGLIFLOZIN
  5. ASPIRIN                            /00002701/ [Concomitant]
     Active Substance: ASPIRIN
  6. ATORVASTATIN [Concomitant]
     Active Substance: ATORVASTATIN
  7. TRULICITY [Concomitant]
     Active Substance: DULAGLUTIDE
  8. LOSARTAN. [Concomitant]
     Active Substance: LOSARTAN
  9. IMBRUVICA [Suspect]
     Active Substance: IBRUTINIB
     Indication: CHRONIC LYMPHOCYTIC LEUKAEMIA
     Dosage: 420 MG, QD
     Route: 048
     Dates: start: 2019
  10. REPAGLINIDE. [Concomitant]
     Active Substance: REPAGLINIDE
  11. PANTOPRAZOLE [Concomitant]
     Active Substance: PANTOPRAZOLE
  12. GLYBURIDE. [Concomitant]
     Active Substance: GLYBURIDE
  13. CARVEDILOL. [Concomitant]
     Active Substance: CARVEDILOL

REACTIONS (2)
  - Liver injury [Not Recovered/Not Resolved]
  - Contusion [Not Recovered/Not Resolved]
